FAERS Safety Report 9259012 (Version 1)
Quarter: 2013Q2

REPORT INFORMATION
  Report Type: Spontaneous
  Country: US (occurrence: US)
  Receive Date: 20130426
  Receipt Date: 20130426
  Transmission Date: 20140414
  Serious: No
  Sender: FDA-Public Use
  Company Number: US-009507513-1304USA015918

PATIENT
  Sex: Male

DRUGS (1)
  1. SAPHRIS [Suspect]
     Indication: SCHIZOAFFECTIVE DISORDER
     Dosage: 5 MG IN THE MORNING AND 15 MG IN THE EVENING, BID
     Route: 060
     Dates: start: 201204

REACTIONS (2)
  - Akathisia [Recovering/Resolving]
  - Off label use [Unknown]
